FAERS Safety Report 13510184 (Version 1)
Quarter: 2017Q2

REPORT INFORMATION
  Report Type: Spontaneous
  Country: US (occurrence: US)
  Receive Date: 20170503
  Receipt Date: 20170503
  Transmission Date: 20170830
  Serious: Yes (Other)
  Sender: FDA-Public Use
  Company Number: US-PFIZER INC-2017194269

PATIENT

DRUGS (1)
  1. ADVIL [Suspect]
     Active Substance: IBUPROFEN
     Indication: VIRAL UPPER RESPIRATORY TRACT INFECTION
     Dosage: UNK

REACTIONS (2)
  - Nephrolithiasis [Unknown]
  - Product use in unapproved indication [Unknown]
